FAERS Safety Report 6633166-3 (Version None)
Quarter: 2010Q1

REPORT INFORMATION
  Report Type: 
  Country: None (occurrence: None)
  Receive Date: 20100312
  Receipt Date: 20100302
  Transmission Date: 20100710
  Serious: Yes (Other)
  Sender: FDA-Public Use
  Company Number: FR-PFIZER INC-2009301148

PATIENT
  Age: 36 Year
  Sex: Female

DRUGS (3)
  1. LYRICA [Suspect]
     Indication: EPENDYMOMA
     Dosage: 300 MG, 1X/DAY
     Dates: start: 20090101, end: 20090401
  2. LYRICA [Suspect]
     Dosage: UNK
     Dates: start: 20090401, end: 20090501
  3. TRAMADOL HCL [Concomitant]
     Dosage: UNK

REACTIONS (3)
  - CREATININE URINE INCREASED [None]
  - NEPHROTIC SYNDROME [None]
  - OLIGURIA [None]
